FAERS Safety Report 4401298-6 (Version None)
Quarter: 2004Q3

REPORT INFORMATION
  Report Type: 
  Country: None (occurrence: None)
  Receive Date: 20040907
  Receipt Date: 20040218
  Transmission Date: 20050211
  Serious: No
  Sender: FDA-Public Use
  Company Number: US-BRISTOL-MYERS SQUIBB COMPANY-12510350

PATIENT
  Age: 75 Year
  Sex: Female

DRUGS (2)
  1. COUMADIN [Suspect]
     Indication: ATRIAL FIBRILLATION
     Route: 048
  2. COUMADIN [Suspect]
     Indication: MITRAL VALVE REPLACEMENT
     Route: 048

REACTIONS (1)
  - PRURITUS [None]
